FAERS Safety Report 10590859 (Version 1)
Quarter: 2014Q4

REPORT INFORMATION
  Report Type: Spontaneous
  Country: DE (occurrence: DE)
  Receive Date: 20141118
  Receipt Date: 20141118
  Transmission Date: 20150529
  Serious: Yes (Congenital Anomaly, Other)
  Sender: FDA-Public Use
  Company Number: DE-GLAXOSMITHKLINE-DE2014022355

PATIENT

DRUGS (2)
  1. FOLIC ACID. [Concomitant]
     Active Substance: FOLIC ACID
     Indication: PROPHYLAXIS OF NEURAL TUBE DEFECT
     Dosage: 5 [MG/D ]
     Route: 064
     Dates: start: 20121210, end: 20130718
  2. LAMOTRIGINE. [Suspect]
     Active Substance: LAMOTRIGINE
     Indication: EPILEPSY
     Dosage: 400 [MG/D (2X200 MG/D) ]
     Route: 064
     Dates: start: 20121210, end: 20130909

REACTIONS (7)
  - Syringomyelia [Not Recovered/Not Resolved]
  - Small for dates baby [Unknown]
  - Foramen magnum stenosis [Not Recovered/Not Resolved]
  - Meningomyelocele [Not Recovered/Not Resolved]
  - Hypoglycaemia neonatal [Recovered/Resolved]
  - Foetal exposure during pregnancy [Unknown]
  - Tethered cord syndrome [Not Recovered/Not Resolved]

NARRATIVE: CASE EVENT DATE: 20130909
